FAERS Safety Report 5408330-1 (Version None)
Quarter: 2007Q3

REPORT INFORMATION
  Report Type: 
  Country: None (occurrence: None)
  Receive Date: 20070803
  Receipt Date: 20070705
  Transmission Date: 20080115
  Serious: Yes (Other)
  Sender: FDA-Public Use
  Company Number: 2007RR-08470

PATIENT
  Age: 44 Year
  Sex: Female
  Weight: 65 kg

DRUGS (5)
  1. FLUOXETINE [Suspect]
     Indication: DEPRESSION
     Dosage: 20 MG, ORAL
     Route: 048
     Dates: start: 20070529, end: 20070619
  2. AMITRIPTYLINE HCL [Concomitant]
  3. DICLOFENAC (DICLOFENAC) [Concomitant]
  4. FELODIPINE [Concomitant]
  5. LANSOPRAZOLE [Concomitant]

REACTIONS (3)
  - ABDOMINAL DISTENSION [None]
  - JOINT SWELLING [None]
  - OEDEMA PERIPHERAL [None]
